FAERS Safety Report 4939615-0 (Version None)
Quarter: 2006Q1

REPORT INFORMATION
  Report Type: 
  Country: None (occurrence: None)
  Receive Date: 20060307
  Receipt Date: 20060228
  Transmission Date: 20060701
  Serious: Yes (Hospitalization)
  Sender: FDA-Public Use
  Company Number: 2006029138

PATIENT
  Age: 62 Year
  Sex: Male
  Weight: 75 kg

DRUGS (4)
  1. NEURONTIN [Suspect]
     Indication: ILL-DEFINED DISORDER
     Dosage: 1200 MG (400 MG, 3 IN 1 D), ORAL
     Route: 048
     Dates: start: 20060125
  2. HEPARIN SODIUM [Suspect]
     Indication: ILL-DEFINED DISORDER
     Dosage: 1 DOSE FORM (1 D), SUBCUTANEOUS
     Route: 058
     Dates: start: 20060125
  3. AUGMENTIN '125' [Suspect]
     Indication: PNEUMONIA ASPIRATION
     Dosage: 3 GRAM (1 D), ORAL
     Route: 048
     Dates: start: 20060202
  4. ASPEGIC 1000 [Concomitant]

REACTIONS (6)
  - ANAEMIA [None]
  - LEUKOPENIA [None]
  - MEAN CELL VOLUME DECREASED [None]
  - NEUTROPENIA [None]
  - PNEUMONIA ASPIRATION [None]
  - SERUM FERRITIN INCREASED [None]
